FAERS Safety Report 7516170-2 (Version None)
Quarter: 2011Q2

REPORT INFORMATION
  Report Type: 
  Country: None (occurrence: None)
  Receive Date: 20110601
  Receipt Date: 20110524
  Transmission Date: 20111010
  Serious: Yes (Hospitalization)
  Sender: FDA-Public Use
  Company Number: CA-ROCHE-779283

PATIENT
  Sex: Female
  Weight: 86.2 kg

DRUGS (9)
  1. TOCILIZUMAB [Suspect]
     Route: 042
     Dates: start: 20101214, end: 20101214
  2. BISOPROLOL [Concomitant]
  3. ACTONEL [Concomitant]
  4. TOCILIZUMAB [Suspect]
     Indication: RHEUMATOID ARTHRITIS
     Route: 042
     Dates: start: 20101118, end: 20101118
  5. TOCILIZUMAB [Suspect]
     Route: 042
     Dates: end: 20110309
  6. NORVASC [Concomitant]
  7. LIPITOR [Concomitant]
  8. RABEPRAZOLE SODIUM [Concomitant]
  9. ARAVA [Concomitant]

REACTIONS (2)
  - OEDEMA PERIPHERAL [None]
  - MYOCARDIAL INFARCTION [None]
